FAERS Safety Report 13335796 (Version 1)
Quarter: 2017Q1

REPORT INFORMATION
  Report Type: Spontaneous
  Country: GB (occurrence: GB)
  Receive Date: 20170314
  Receipt Date: 20170314
  Transmission Date: 20170428
  Serious: Yes (Other)
  Sender: FDA-Public Use
  Company Number: GB-B.I. PHARMACEUTICALS,INC./RIDGEFIELD-2017-BI-013129

PATIENT
  Age: 40 Year
  Sex: Male
  Weight: 93.2 kg

DRUGS (10)
  1. ATORVASTATIN [Concomitant]
     Active Substance: ATORVASTATIN
     Indication: PRODUCT USED FOR UNKNOWN INDICATION
     Route: 065
  2. RAMIPRIL. [Concomitant]
     Active Substance: RAMIPRIL
     Indication: PRODUCT USED FOR UNKNOWN INDICATION
     Route: 065
  3. JARDIANCE [Suspect]
     Active Substance: EMPAGLIFLOZIN
     Indication: TYPE 2 DIABETES MELLITUS
     Route: 048
     Dates: start: 20170207, end: 20170211
  4. LACTULOSE. [Concomitant]
     Active Substance: LACTULOSE
     Indication: PRODUCT USED FOR UNKNOWN INDICATION
     Route: 065
  5. PARACETAMOL [Concomitant]
     Active Substance: ACETAMINOPHEN
     Indication: PRODUCT USED FOR UNKNOWN INDICATION
     Route: 065
  6. EXENATIDE [Concomitant]
     Active Substance: EXENATIDE
     Indication: PRODUCT USED FOR UNKNOWN INDICATION
     Route: 065
  7. FENBID [Concomitant]
     Active Substance: IBUPROFEN
     Indication: PRODUCT USED FOR UNKNOWN INDICATION
     Route: 065
  8. SUSTANON [Concomitant]
     Active Substance: TESTOSTERONE DECANOATE\TESTOSTERONE ISOCAPROATE\TESTOSTERONE PHENYLPROPIONATE\TESTOSTERONE PROPIONATE
     Indication: PRODUCT USED FOR UNKNOWN INDICATION
     Route: 065
  9. METFORMIN [Concomitant]
     Active Substance: METFORMIN HYDROCHLORIDE
     Indication: PRODUCT USED FOR UNKNOWN INDICATION
     Route: 065
  10. NOVOMIX [Concomitant]
     Active Substance: INSULIN ASPART
     Indication: PRODUCT USED FOR UNKNOWN INDICATION
     Route: 065

REACTIONS (11)
  - Diabetic ketoacidosis [Not Recovered/Not Resolved]
  - Nocturia [Unknown]
  - Insomnia [Recovering/Resolving]
  - Malaise [Recovering/Resolving]
  - Hyperhidrosis [Recovering/Resolving]
  - Thirst [Unknown]
  - Pollakiuria [Unknown]
  - Chest pain [Recovering/Resolving]
  - Cough [Unknown]
  - Fatigue [Recovering/Resolving]
  - Skin warm [Recovering/Resolving]

NARRATIVE: CASE EVENT DATE: 20170208
